FAERS Safety Report 4309806-0 (Version None)
Quarter: 2004Q1

REPORT INFORMATION
  Report Type: 
  Country: None (occurrence: None)
  Receive Date: 20040301
  Receipt Date: 20040223
  Transmission Date: 20041129
  Serious: Yes (Hospitalization)
  Sender: FDA-Public Use
  Company Number: 2004200565US

PATIENT

DRUGS (1)
  1. CELEBREX [Suspect]

REACTIONS (2)
  - CHILLS [None]
  - DYSPEPSIA [None]
